FAERS Safety Report 5138018-6 (Version None)
Quarter: 2006Q4

REPORT INFORMATION
  Report Type: 
  Country: None (occurrence: None)
  Receive Date: 20061030
  Receipt Date: 20060327
  Transmission Date: 20070319
  Serious: No
  Sender: FDA-Public Use
  Company Number: US-GLAXOSMITHKLINE-A0599985A

PATIENT
  Age: 68 Year
  Sex: Female

DRUGS (5)
  1. ADVAIR HFA [Suspect]
     Indication: ASTHMA
     Route: 055
     Dates: end: 20030101
  2. HYZAAR [Concomitant]
  3. SYNTHROID [Concomitant]
  4. ALLEGRA-D 12 HOUR [Concomitant]
  5. PROVENTIL [Concomitant]

REACTIONS (7)
  - ADVERSE EVENT [None]
  - BONE PAIN [None]
  - EAR PAIN [None]
  - HEART RATE INCREASED [None]
  - MALAISE [None]
  - MUSCLE SPASMS [None]
  - PAIN OF SKIN [None]
